FAERS Safety Report 8860672 (Version 2)
Quarter: 2013Q2

REPORT INFORMATION
  Report Type: Report from Study
  Country: US (occurrence: US)
  Receive Date: 20121025
  Receipt Date: 20130404
  Transmission Date: 20140414
  Serious: Yes (Other)
  Sender: FDA-Public Use
  Company Number: US-ALEXION-A201201693

PATIENT
  Age: 76 Year
  Sex: Male

DRUGS (10)
  1. SOLIRIS [Suspect]
     Indication: PAROXYSMAL NOCTURNAL HAEMOGLOBINURIA
     Dosage: 600 MG, QW X 4
     Route: 042
     Dates: start: 201208
  2. SOLIRIS [Suspect]
     Dosage: 900 MG, Q2W
     Route: 042
  3. DANAZOL [Concomitant]
     Dosage: 200 MG, BID
  4. FOLIC ACID [Concomitant]
     Dosage: 1 MG, QD
  5. COMPAZINE [Concomitant]
     Indication: NAUSEA
     Dosage: 10 MG, PRN
  6. TASIGNA [Concomitant]
     Indication: CHRONIC MYELOID LEUKAEMIA
     Dosage: 400 MG, BID
  7. ARANESP [Concomitant]
     Dosage: UNK, Q2W
  8. ASPIRIN [Concomitant]
     Dosage: 325 MG, QD
  9. MULTIVITAMIN [Concomitant]
     Dosage: UNK, QD
  10. NAPROXEN [Concomitant]
     Dosage: 250 MG, PRN

REACTIONS (10)
  - Atrial fibrillation [Recovered/Resolved]
  - Transfusion [Unknown]
  - Haemoglobin decreased [Recovering/Resolving]
  - Tachycardia [Unknown]
  - Blood lactate dehydrogenase increased [Unknown]
  - Dyspnoea [Unknown]
  - Vertigo [Unknown]
  - Fatigue [Unknown]
  - Palpitations [Unknown]
  - Asthenia [Unknown]
